FAERS Safety Report 11701724 (Version 2)
Quarter: 2015Q4

REPORT INFORMATION
  Report Type: Spontaneous
  Country: EG (occurrence: EG)
  Receive Date: 20151105
  Receipt Date: 20151223
  Transmission Date: 20160304
  Serious: Yes (Death, Other)
  Sender: FDA-Public Use
  Company Number: EG-PFIZER INC-2015372044

PATIENT
  Age: 60 Year
  Sex: Female

DRUGS (10)
  1. TYGACIL [Suspect]
     Active Substance: TIGECYCLINE
     Indication: PNEUMONIA
  2. TIENAM [Concomitant]
     Active Substance: CILASTATIN SODIUM\IMIPENEM
     Indication: URINARY TRACT INFECTION
  3. NORVASC [Concomitant]
     Active Substance: AMLODIPINE BESYLATE
     Dosage: 5 MG, UNK
  4. PULMICORT TURBUHALER [Concomitant]
     Active Substance: BUDESONIDE
  5. ATROVENT [Concomitant]
     Active Substance: IPRATROPIUM BROMIDE
  6. ZYVOX [Suspect]
     Active Substance: LINEZOLID
     Indication: EVIDENCE BASED TREATMENT
     Dosage: 600 MG, 2X/DAY
     Route: 042
  7. MERONEM [Concomitant]
     Active Substance: MEROPENEM
     Indication: PNEUMONIA
     Dosage: 1 G, 3X/DAY
     Route: 042
  8. CONTROLOC /01263201/ [Concomitant]
     Dosage: 40 MG, UNK
  9. TYGACIL [Suspect]
     Active Substance: TIGECYCLINE
     Indication: URINARY TRACT INFECTION
     Dosage: 50 MG, 2X/DAY
     Route: 042
  10. CLEXAN [Concomitant]
     Dosage: 40 MG, UNK

REACTIONS (4)
  - Rash [Unknown]
  - Snoring [Fatal]
  - Oxygen saturation decreased [Fatal]
  - Laryngeal oedema [Fatal]
